FAERS Safety Report 11896442 (Version 5)
Quarter: 2018Q2

REPORT INFORMATION
  Report Type: Spontaneous
  Country: ES (occurrence: ES)
  Receive Date: 20160107
  Receipt Date: 20180416
  Transmission Date: 20180711
  Serious: Yes (Death, Life-Threatening, Other)
  Sender: FDA-Public Use
  Company Number: ES-ALEXION PHARMACEUTICALS INC-A201504126

PATIENT
  Age: 4 Year
  Sex: Male

DRUGS (7)
  1. SOLIRIS [Suspect]
     Active Substance: ECULIZUMAB
     Indication: DOWLING-DEGOS DISEASE
     Dosage: 300 MG, QW
     Route: 042
  2. ACETYLSALICYLIC ACID [Concomitant]
     Active Substance: ASPIRIN
     Indication: DOWLING-DEGOS DISEASE
     Dosage: 100 MG, QD
     Route: 065
  3. SOLIRIS [Suspect]
     Active Substance: ECULIZUMAB
     Indication: OFF LABEL USE
     Dosage: 300 MG, UNK
     Route: 065
  4. TREPROSTINIL [Concomitant]
     Active Substance: TREPROSTINIL
     Indication: SKIN LESION
  5. TREPROSTINIL [Concomitant]
     Active Substance: TREPROSTINIL
     Indication: MALIGNANT ATROPHIC PAPULOSIS
     Dosage: UNK
     Route: 058
  6. SOLIRIS [Suspect]
     Active Substance: ECULIZUMAB
     Dosage: UNK MG, QW
     Route: 042
     Dates: start: 201603
  7. SOLIRIS [Suspect]
     Active Substance: ECULIZUMAB
     Dosage: 300 MG, Q2W
     Route: 042
     Dates: start: 201510

REACTIONS (6)
  - General physical health deterioration [Fatal]
  - Condition aggravated [Fatal]
  - Ischaemia [Not Recovered/Not Resolved]
  - Off label use [Not Recovered/Not Resolved]
  - Dowling-Degos disease [Fatal]
  - Drug ineffective for unapproved indication [Fatal]

NARRATIVE: CASE EVENT DATE: 201510
